FAERS Safety Report 22062438 (Version 1)
Quarter: 2023Q1

REPORT INFORMATION
  Report Type: Spontaneous
  Country: US (occurrence: US)
  Receive Date: 20230305
  Receipt Date: 20230305
  Transmission Date: 20230418
  Serious: Yes (Hospitalization)
  Sender: FDA-Public Use
  Company Number: US-PRINSTON PHARMACEUTICAL INC.-2023PRN00077

PATIENT
  Sex: Female

DRUGS (4)
  1. FUROSEMIDE [Suspect]
     Active Substance: FUROSEMIDE
     Indication: Fluid retention
     Dosage: UNK
  2. FUROSEMIDE [Suspect]
     Active Substance: FUROSEMIDE
     Indication: Fluid retention
     Dosage: UNK
  3. FUROSEMIDE [Suspect]
     Active Substance: FUROSEMIDE
     Indication: Fluid retention
     Dosage: UNK
  4. FUROSEMIDE [Suspect]
     Active Substance: FUROSEMIDE
     Indication: Fluid retention
     Dosage: UNK
     Route: 042

REACTIONS (3)
  - Hospitalisation [Unknown]
  - Deformity [Not Recovered/Not Resolved]
  - General physical condition abnormal [Not Recovered/Not Resolved]
